FAERS Safety Report 20090881 (Version 2)
Quarter: 2022Q1

REPORT INFORMATION
  Report Type: Spontaneous
  Country: IN (occurrence: IN)
  Receive Date: 20211119
  Receipt Date: 20220105
  Transmission Date: 20220424
  Serious: Yes (Other)
  Sender: FDA-Public Use
  Company Number: IN-PFIZER INC-202101506998

PATIENT
  Age: 73 Year
  Sex: Male

DRUGS (1)
  1. SUTENT [Suspect]
     Active Substance: SUNITINIB MALATE
     Indication: Renal cell carcinoma
     Dosage: 50 MG, 1X/DAY
     Route: 048
     Dates: start: 20211101

REACTIONS (5)
  - Feeding disorder [Unknown]
  - Pain [Not Recovered/Not Resolved]
  - Wound [Unknown]
  - General physical health deterioration [Unknown]
  - Fluid retention [Unknown]

NARRATIVE: CASE EVENT DATE: 20210101
